FAERS Safety Report 7927062-9 (Version None)
Quarter: 2011Q4

REPORT INFORMATION
  Report Type: 
  Country: None (occurrence: None)
  Receive Date: 20111118
  Receipt Date: 20111112
  Transmission Date: 20120403
  Serious: Yes (Other)
  Sender: FDA-Public Use
  Company Number: PL-ASTELLAS-2011EU001720

PATIENT
  Age: 64 Year
  Sex: Male
  Weight: 85 kg

DRUGS (9)
  1. METOCLOPRAMIDE [Concomitant]
     Dosage: 10 MG, TID
     Route: 042
  2. CASPOFUNGIN ACETATE [Concomitant]
     Indication: FUNGAL INFECTION
     Dosage: UNK
     Route: 065
  3. COLISTIN [Concomitant]
     Dosage: UNK
     Route: 050
  4. METOCARD [Concomitant]
     Dosage: 50 MG, BID
     Route: 050
  5. PROXACIN [Concomitant]
     Dosage: 400 MG, BID
     Route: 042
  6. CEFOPERAZONE SODIUM [Concomitant]
     Dosage: 2 G, QID
     Route: 042
  7. MYCAMINE [Suspect]
     Indication: FUNGAL INFECTION
     Dosage: 100 DF, UID/QD
     Route: 042
     Dates: start: 20110221, end: 20110224
  8. FRAXIPARIN [Concomitant]
     Dosage: 0.8 ML, BID
     Route: 058
  9. ACETYLOCYSTEINA [Concomitant]
     Dosage: 300 MG, TID
     Route: 042

REACTIONS (2)
  - SWELLING FACE [None]
  - RASH [None]
